FAERS Safety Report 24388800 (Version 2)
Quarter: 2024Q4

REPORT INFORMATION
  Report Type: Spontaneous
  Country: CN (occurrence: CN)
  Receive Date: 20241002
  Receipt Date: 20241011
  Transmission Date: 20250114
  Serious: Yes (Other)
  Sender: PFIZER
  Company Number: CN-PFIZER INC-PV202400128290

PATIENT
  Age: 8 Month
  Sex: Male
  Weight: 9 kg

DRUGS (1)
  1. SOLU-MEDROL [Suspect]
     Active Substance: METHYLPREDNISOLONE SODIUM SUCCINATE
     Indication: Kawasaki^s disease
     Dosage: 9 MG, 2X/DAY
     Route: 041
     Dates: start: 20240914, end: 20240918

REACTIONS (2)
  - White blood cell count increased [Recovering/Resolving]
  - Off label use [Unknown]

NARRATIVE: CASE EVENT DATE: 20240919
